FAERS Safety Report 18304847 (Version 2)
Quarter: 2020Q4

REPORT INFORMATION
  Report Type: Spontaneous
  Country: PT (occurrence: PT)
  Receive Date: 20200923
  Receipt Date: 20201002
  Transmission Date: 20210113
  Serious: Yes (Other)
  Sender: FDA-Public Use
  Company Number: PT-PFIZER INC-2020364288

PATIENT
  Age: 47 Year
  Sex: Male

DRUGS (1)
  1. ATORVASTATIN CALCIUM. [Suspect]
     Active Substance: ATORVASTATIN CALCIUM
     Dosage: 80 MG

REACTIONS (1)
  - Drug-induced liver injury [Recovering/Resolving]
